FAERS Safety Report 17525940 (Version 1)
Quarter: 2020Q1

REPORT INFORMATION
  Report Type: Spontaneous
  Country: BE (occurrence: BE)
  Receive Date: 20200310
  Receipt Date: 20200310
  Transmission Date: 20200409
  Serious: Yes (Life-Threatening, Hospitalization)
  Sender: FDA-Public Use
  Company Number: BE-ELI_LILLY_AND_COMPANY-BE202003002518

PATIENT
  Age: 82 Year
  Sex: Female
  Weight: 95 kg

DRUGS (11)
  1. TRULICITY [Suspect]
     Active Substance: DULAGLUTIDE
     Indication: DIABETES MELLITUS
     Dosage: 1 DOSAGE FORM, WEEKLY (1/W)
     Route: 058
     Dates: start: 20191001, end: 20191201
  2. TRULICITY [Suspect]
     Active Substance: DULAGLUTIDE
     Dosage: 1 DOSAGE FORM, WEEKLY (1/W)
     Route: 058
     Dates: start: 20191214, end: 20200106
  3. TOUJEO [Concomitant]
     Active Substance: INSULIN GLARGINE
     Dosage: 6 O^CLOCK PM
  4. VITAMIN B12 AAA [Concomitant]
     Dosage: THURSDAYS
  5. LYSANXIA [Concomitant]
     Active Substance: PRAZEPAM
     Dosage: 5 DOSAGE FORM, UNKNOWN
     Route: 065
  6. SIMVASTATINE [Concomitant]
     Active Substance: SIMVASTATIN
     Dosage: 6 O^CLOCK PM
  7. PARACETAMOL [Concomitant]
     Active Substance: ACETAMINOPHEN
     Dosage: 6 O^CLOCK PM
  8. BISOPROLOL [Concomitant]
     Active Substance: BISOPROLOL
     Dosage: MORNING
  9. GLUCOPHAGE [Concomitant]
     Active Substance: METFORMIN HYDROCHLORIDE
  10. ELIQUIS [Concomitant]
     Active Substance: APIXABAN
     Dosage: 8 O^CLOCK AM- 6 O^CLOCK PM
  11. TRULICITY [Suspect]
     Active Substance: DULAGLUTIDE
     Dosage: 1 DOSAGE FORM, WEEKLY (1/W)
     Route: 058
     Dates: start: 20200115, end: 20200129

REACTIONS (5)
  - Confusional state [Recovered/Resolved with Sequelae]
  - Abnormal behaviour [Recovered/Resolved with Sequelae]
  - Chorea [Recovered/Resolved with Sequelae]
  - Ballismus [Recovered/Resolved with Sequelae]
  - Akathisia [Recovered/Resolved with Sequelae]

NARRATIVE: CASE EVENT DATE: 201911
